FAERS Safety Report 15980253 (Version 10)
Quarter: 2020Q1

REPORT INFORMATION
  Report Type: Spontaneous
  Country: US (occurrence: US)
  Receive Date: 20190219
  Receipt Date: 20200214
  Transmission Date: 20200409
  Serious: No
  Sender: FDA-Public Use
  Company Number: US-PFIZER INC-2019063964

PATIENT
  Age: 15 Year
  Sex: Male
  Weight: 45.36 kg

DRUGS (4)
  1. GENOTROPIN [Suspect]
     Active Substance: SOMATROPIN
     Indication: GROWTH HORMONE DEFICIENCY
     Dosage: 2.6 MG, DAILY
     Dates: start: 20190206
  2. GENOTROPIN [Suspect]
     Active Substance: SOMATROPIN
     Dosage: 3.2 MG, DAILY
     Dates: start: 201902
  3. GENOTROPIN [Suspect]
     Active Substance: SOMATROPIN
     Dosage: UNK (4MG TO 6MG)
  4. GENOTROPIN [Suspect]
     Active Substance: SOMATROPIN
     Dosage: 2.6 MG, 6 DAYS A WEEK
     Dates: start: 20190211

REACTIONS (4)
  - Injection site pain [Not Recovered/Not Resolved]
  - Product dose omission [Unknown]
  - Exposure via skin contact [Unknown]
  - Accidental exposure to product [Unknown]

NARRATIVE: CASE EVENT DATE: 20190206
